FAERS Safety Report 18244186 (Version 2)
Quarter: 2020Q3

REPORT INFORMATION
  Report Type: Spontaneous
  Country: IT (occurrence: IT)
  Receive Date: 20200909
  Receipt Date: 20200924
  Transmission Date: 20201103
  Serious: Yes (Hospitalization, Other)
  Sender: FDA-Public Use
  Company Number: IT-AUROBINDO-AUR-APL-2020-046698

PATIENT
  Age: 68 Year
  Sex: Female

DRUGS (3)
  1. BROMAZEPAM TABLET [Suspect]
     Active Substance: BROMAZEPAM
     Indication: PRODUCT USED FOR UNKNOWN INDICATION
     Dosage: 1 DOSAGE FORM TOTAL
     Route: 048
     Dates: start: 20180217, end: 20180217
  2. QUETIAPINE FUMARATE. [Concomitant]
     Active Substance: QUETIAPINE FUMARATE
     Indication: NARCISSISTIC PERSONALITY DISORDER
     Dosage: 400 MILLIGRAM
     Route: 048
  3. LORAZEPAM TABLETS [Suspect]
     Active Substance: LORAZEPAM
     Indication: PRODUCT USED FOR UNKNOWN INDICATION
     Dosage: 20 MILLIGRAM TOTAL
     Route: 048
     Dates: start: 20180217, end: 20180217

REACTIONS (4)
  - Drug abuse [Recovering/Resolving]
  - Oxygen saturation decreased [Recovering/Resolving]
  - Tachycardia [Recovering/Resolving]
  - Sopor [Recovering/Resolving]

NARRATIVE: CASE EVENT DATE: 20180217
